FAERS Safety Report 8771071 (Version 1)
Quarter: 2012Q4

REPORT INFORMATION
  Report Type: 
  Country: BR (occurrence: BR)
  Receive Date: 20120906
  Receipt Date: 20120906
  Transmission Date: 20130627
  Serious: Yes (Hospitalization)
  Sender: FDA-Public Use
  Company Number: BR-PFIZER INC-2012215043

PATIENT
  Age: 63 Year
  Sex: Female

DRUGS (2)
  1. XALACOM [Suspect]
     Indication: GLAUCOMA
     Dosage: 1 drop each eye 1x/day
     Route: 047
     Dates: start: 20120829, end: 20120829
  2. XALATAN [Suspect]

REACTIONS (5)
  - Drug name confusion [Unknown]
  - Wrong drug administered [Unknown]
  - Myocardial infarction [Unknown]
  - Bronchitis [Unknown]
  - Eye irritation [Unknown]
